FAERS Safety Report 6084954-6 (Version None)
Quarter: 2009Q1

REPORT INFORMATION
  Report Type: 
  Country: None (occurrence: None)
  Receive Date: 20090220
  Receipt Date: 20090212
  Transmission Date: 20090719
  Serious: Yes (Other)
  Sender: FDA-Public Use
  Company Number: US-JNJFOC-20090203766

PATIENT
  Sex: Female
  Weight: 81.65 kg

DRUGS (20)
  1. FENTANYL TRANSDERMAL SYSTEM [Suspect]
     Indication: INTERVERTEBRAL DISC DEGENERATION
     Dosage: ONE 100UG/HR PLUS ONE 50UG/HR
     Route: 062
  2. DURAGESIC-100 [Suspect]
     Indication: INTERVERTEBRAL DISC DEGENERATION
     Route: 062
  3. TOPAMAX [Concomitant]
     Indication: RESTLESS LEGS SYNDROME
     Dosage: 100 MG 2 AT NIGHT
     Route: 048
  4. ULTRAM [Concomitant]
     Indication: PAIN
     Route: 048
  5. CELEBREX [Concomitant]
     Indication: ARTHRITIS
     Route: 048
  6. SYNTHROID [Concomitant]
     Indication: HYPOTHYROIDISM
     Route: 048
  7. SINGULAIR [Concomitant]
     Indication: SEASONAL ALLERGY
  8. PRILOSEC [Concomitant]
     Indication: GASTROOESOPHAGEAL REFLUX DISEASE
     Route: 048
  9. BUSBAR [Concomitant]
     Indication: ANXIETY
     Dosage: 30 MG 1/2 TWICE A DAY AND AT NIGHT
  10. ROBAXIN [Concomitant]
     Indication: MUSCLE DISORDER
     Dosage: 750 MG 3 TIMES A DAY AS NEEDED
     Route: 048
  11. ZOLOFT [Concomitant]
     Indication: DEPRESSION
     Dosage: 100 MG 1 AND A 1/2 TABLET AT NIGHT
     Route: 048
  12. WELLBUTRIN [Concomitant]
     Indication: DEPRESSION
     Dosage: TOTAL DOSE 450MG
     Route: 048
  13. MIRAPEX [Concomitant]
     Indication: RESTLESS LEGS SYNDROME
     Dosage: TOTAL DOSE 375UG
     Route: 048
  14. SINEMET [Concomitant]
     Indication: RESTLESS LEGS SYNDROME
     Route: 048
  15. KLONOPIN WAFERS [Concomitant]
     Indication: ANXIETY
     Dosage: AS NEEDED
     Route: 048
  16. LIPITOR [Concomitant]
     Indication: BLOOD CHOLESTEROL INCREASED
     Route: 048
  17. DETROL [Concomitant]
     Indication: POLLAKIURIA
     Route: 048
  18. ZETIA [Concomitant]
     Indication: BLOOD CHOLESTEROL INCREASED
     Route: 048
  19. NAPROXEN SODIUM [Concomitant]
     Indication: MIGRAINE
  20. FIORICET [Concomitant]
     Indication: PAIN
     Route: 048

REACTIONS (6)
  - BACK PAIN [None]
  - DIABETES MELLITUS [None]
  - ELECTROCARDIOGRAM ABNORMAL [None]
  - HYPERTENSION [None]
  - LOWER EXTREMITY MASS [None]
  - THERAPEUTIC RESPONSE DECREASED [None]
